FAERS Safety Report 19224158 (Version 1)
Quarter: 2021Q2

REPORT INFORMATION
  Report Type: Spontaneous
  Country: US (occurrence: US)
  Receive Date: 20210505
  Receipt Date: 20210505
  Transmission Date: 20210717
  Serious: No
  Sender: FDA-Public Use
  Company Number: US-ROCHE-2577295

PATIENT
  Sex: Female

DRUGS (22)
  1. ESBRIET [Suspect]
     Active Substance: PIRFENIDONE
     Dosage: 3 (267 MG) TABLETS 3 TIMES A DAY ;
     Route: 048
     Dates: start: 2020, end: 2020
  2. RESTASIS [Concomitant]
     Active Substance: CYCLOSPORINE
  3. SPIRIVA [Concomitant]
     Active Substance: TIOTROPIUM BROMIDE MONOHYDRATE
  4. LEVOTHYROXINE SODIUM. [Concomitant]
     Active Substance: LEVOTHYROXINE SODIUM
  5. VITAMIN B12 [Concomitant]
     Active Substance: CYANOCOBALAMIN
  6. DICLOFENAC [Concomitant]
     Active Substance: DICLOFENAC
  7. IBUPROFEN. [Concomitant]
     Active Substance: IBUPROFEN
  8. XARELTO [Concomitant]
     Active Substance: RIVAROXABAN
  9. MECLIZINE HCL [Concomitant]
     Active Substance: MECLIZINE HYDROCHLORIDE
  10. METOPROLOL SUCCINATE ER [Concomitant]
     Active Substance: METOPROLOL SUCCINATE
  11. FLUOXETINE HCL [Concomitant]
     Active Substance: FLUOXETINE HYDROCHLORIDE
  12. OMEPRAZOLE. [Concomitant]
     Active Substance: OMEPRAZOLE
  13. ESBRIET [Suspect]
     Active Substance: PIRFENIDONE
     Indication: IDIOPATHIC PULMONARY FIBROSIS
     Dosage: 2 (267 MG) TABLETS 3 TIMES A DAY
     Route: 048
     Dates: start: 20200228
  14. ALBUTEROL SULFATE. [Concomitant]
     Active Substance: ALBUTEROL SULFATE
  15. CLARITIN [Concomitant]
     Active Substance: LORATADINE
  16. LIPITOR [Concomitant]
     Active Substance: ATORVASTATIN CALCIUM
  17. TYLENOL [Concomitant]
     Active Substance: ACETAMINOPHEN
  18. SYMBICORT [Concomitant]
     Active Substance: BUDESONIDE\FORMOTEROL FUMARATE DIHYDRATE
  19. FUROSEMIDE. [Concomitant]
     Active Substance: FUROSEMIDE
  20. VITAMIN D3 [Concomitant]
     Active Substance: CHOLECALCIFEROL
  21. FOSAMAX [Concomitant]
     Active Substance: ALENDRONATE SODIUM
  22. PROZAC [Concomitant]
     Active Substance: FLUOXETINE HYDROCHLORIDE

REACTIONS (4)
  - Dizziness [Not Recovered/Not Resolved]
  - Faeces discoloured [Unknown]
  - Nausea [Not Recovered/Not Resolved]
  - Pruritus [Not Recovered/Not Resolved]
